FAERS Safety Report 5565283-3 (Version None)
Quarter: 2007Q4

REPORT INFORMATION
  Report Type: 
  Country: None (occurrence: None)
  Receive Date: 20071213
  Receipt Date: 20071130
  Transmission Date: 20080405
  Serious: Yes (Hospitalization)
  Sender: FDA-Public Use
  Company Number: 2007S1013145

PATIENT
  Age: 55 Year
  Sex: Female

DRUGS (11)
  1. FENTANYL TRANSDERMAL SYSTEM [Suspect]
     Indication: PAIN
     Dosage: 100 UG/HR;EVERY 3 DAYS; TRANSDERMAL
     Route: 062
     Dates: start: 20070825, end: 20070924
  2. FENTANYL TRANSDERMAL SYSTEM [Suspect]
     Dosage: 100 UG/HR;EVERY 3 DAYS;TRANSDERMAL
     Route: 062
     Dates: start: 20050201, end: 20070824
  3. FENTANYL TRANSDERMAL SYSTEM [Suspect]
     Dosage: 100 UG/HR;EVERY 3 DAYS;TRANSDERMAL
     Route: 062
     Dates: start: 20070924
  4. COUMADIN [Concomitant]
  5. TOPROL-XL [Concomitant]
  6. FUROSEMIDE [Concomitant]
  7. SPIRONOLACTONE [Concomitant]
  8. HYDROXYCHLOROQUINE SULFATE [Concomitant]
  9. POTASSIUM CHLORIDE [Concomitant]
  10. COUMADIN [Concomitant]
  11. TOPROL-XL [Concomitant]

REACTIONS (3)
  - HIP ARTHROPLASTY [None]
  - MITRAL VALVE REPLACEMENT [None]
  - TRICUSPID VALVE REPLACEMENT [None]
